FAERS Safety Report 11597147 (Version 1)
Quarter: 2015Q3

REPORT INFORMATION
  Report Type: Spontaneous
  Country: US (occurrence: US)
  Receive Date: 20150916
  Receipt Date: 20150916
  Transmission Date: 20151125
  Serious: No
  Sender: FDA-Public Use
  Company Number: US-ELI_LILLY_AND_COMPANY-US200801005513

PATIENT
  Sex: Female

DRUGS (3)
  1. TYLENOL /USA/ [Concomitant]
  2. FORTEO [Suspect]
     Active Substance: TERIPARATIDE
     Dates: start: 200712
  3. ESTROGEN NOS [Concomitant]
     Active Substance: ESTROGENS

REACTIONS (6)
  - Malaise [Not Recovered/Not Resolved]
  - Abdominal distension [Not Recovered/Not Resolved]
  - Muscle spasms [Not Recovered/Not Resolved]
  - Arthritis [Not Recovered/Not Resolved]
  - Constipation [Not Recovered/Not Resolved]
  - Abdominal discomfort [Not Recovered/Not Resolved]

NARRATIVE: CASE EVENT DATE: 200712
